FAERS Safety Report 21421165 (Version 3)
Quarter: 2023Q1

REPORT INFORMATION
  Report Type: Spontaneous
  Country: JP (occurrence: JP)
  Receive Date: 20221007
  Receipt Date: 20230320
  Transmission Date: 20230418
  Serious: Yes (Other)
  Sender: FDA-Public Use
  Company Number: JP-GSKNCCC-Case-01584482_AE-62926

PATIENT

DRUGS (3)
  1. ATOVAQUONE [Suspect]
     Active Substance: ATOVAQUONE
     Dosage: 10 ML, QD
  2. ATOVAQUONE [Suspect]
     Active Substance: ATOVAQUONE
     Dosage: 5 ML, BID
  3. ATOVAQUONE [Suspect]
     Active Substance: ATOVAQUONE
     Dosage: 5 ML, BID

REACTIONS (1)
  - Pneumocystis jirovecii pneumonia [Unknown]
